FAERS Safety Report 10430539 (Version 1)
Quarter: 2014Q3

REPORT INFORMATION
  Report Type: Spontaneous
  Country: US (occurrence: None)
  Receive Date: 20140903
  Receipt Date: 20140903
  Transmission Date: 20150326
  Serious: Yes (Life-Threatening, Hospitalization)
  Sender: FDA-Public Use
  Company Number: None

PATIENT
  Age: 62 Year
  Sex: Female
  Weight: 75.3 kg

DRUGS (1)
  1. PRAMIPEXOLE .5 MG [Suspect]
     Active Substance: PRAMIPEXOLE
     Indication: RESTLESS LEGS SYNDROME
     Route: 048
     Dates: start: 20100610, end: 20140814

REACTIONS (1)
  - Malignant melanoma [None]

NARRATIVE: CASE EVENT DATE: 20130710
